FAERS Safety Report 20808766 (Version 1)
Quarter: 2022Q2

REPORT INFORMATION
  Report Type: Spontaneous
  Country: IT (occurrence: IT)
  Receive Date: 20220510
  Receipt Date: 20220510
  Transmission Date: 20220721
  Serious: Yes (Hospitalization, Other)
  Sender: FDA-Public Use
  Company Number: IT-ASTELLAS-2022US016844

PATIENT
  Age: 52 Year
  Sex: Female

DRUGS (7)
  1. GILTERITINIB [Interacting]
     Active Substance: GILTERITINIB
     Indication: Acute myeloid leukaemia recurrent
     Route: 065
  2. ISAVUCONAZOLE [Suspect]
     Active Substance: ISAVUCONAZOLE
     Indication: Antifungal prophylaxis
     Dosage: UNK UNK, UNKNOWN FREQ.
     Route: 065
  3. FOSFOMYCIN [Interacting]
     Active Substance: FOSFOMYCIN
     Indication: Antibiotic therapy
     Dosage: UNK UNK, UNKNOWN FREQ.
     Route: 065
  4. AMPHOTERICIN B [Interacting]
     Active Substance: AMPHOTERICIN B
     Indication: Antibiotic therapy
     Dosage: UNK UNK, UNKNOWN FREQ.
     Route: 065
  5. HYDROXYUREA [Concomitant]
     Active Substance: HYDROXYUREA
     Indication: Leukocytosis
     Dosage: UNK UNK, UNKNOWN FREQ.
     Route: 065
  6. AVIBACTAM SODIUM\CEFTAZIDIME [Concomitant]
     Active Substance: AVIBACTAM SODIUM\CEFTAZIDIME
     Indication: Evidence based treatment
     Dosage: UNK UNK, UNKNOWN FREQ.
     Route: 065
  7. LINEZOLID [Concomitant]
     Active Substance: LINEZOLID
     Indication: Evidence based treatment
     Dosage: UNK UNK, UNKNOWN FREQ.
     Route: 065

REACTIONS (3)
  - Differentiation syndrome [Recovering/Resolving]
  - Drug interaction [Unknown]
  - Off label use [Unknown]
